FAERS Safety Report 8977691 (Version 1)
Quarter: 2012Q4

REPORT INFORMATION
  Report Type: 
  Country: US (occurrence: US)
  Receive Date: 20121219
  Receipt Date: 20121219
  Transmission Date: 20130627
  Serious: No
  Sender: FDA-Public Use
  Company Number: US-ASTRAZENECA-2012SE92024

PATIENT
  Sex: Female

DRUGS (4)
  1. PULMICORT FLEXHALER [Suspect]
     Dosage: 2 DOSES DAILY
     Route: 055
  2. SYMBICORT PMDI [Suspect]
     Dosage: 2 DOSES TWO TIMES A DAY
     Route: 055
  3. SPIRIVA [Concomitant]
  4. FORADIL [Concomitant]

REACTIONS (3)
  - Feeling abnormal [Unknown]
  - Lung disorder [Unknown]
  - Flatulence [Unknown]
